FAERS Safety Report 6830998-3 (Version None)
Quarter: 2010Q3

REPORT INFORMATION
  Report Type: 
  Country: None (occurrence: None)
  Receive Date: 20100712
  Receipt Date: 20100630
  Transmission Date: 20110219
  Serious: No
  Sender: FDA-Public Use
  Company Number: US-JNJFOC-20091003719

PATIENT
  Sex: Female
  Weight: 70.31 kg

DRUGS (19)
  1. DURAGESIC-100 [Suspect]
     Indication: BACK PAIN
     Route: 062
     Dates: start: 20070101
  2. DURAGESIC-100 [Suspect]
     Route: 062
     Dates: start: 20070101
  3. DURAGESIC-100 [Suspect]
     Route: 062
     Dates: start: 20070101
  4. DURAGESIC-100 [Suspect]
     Route: 062
     Dates: start: 20070101
  5. DURAGESIC-100 [Suspect]
     Indication: PAIN IN EXTREMITY
     Route: 062
     Dates: start: 20070101
  6. DURAGESIC-100 [Suspect]
     Route: 062
     Dates: start: 20070101
  7. DURAGESIC-100 [Suspect]
     Route: 062
     Dates: start: 20070101
  8. DURAGESIC-100 [Suspect]
     Route: 062
     Dates: start: 20070101
  9. FENTANYL-100 [Suspect]
     Indication: BACK PAIN
     Route: 062
  10. FENTANYL-100 [Suspect]
     Route: 062
  11. FENTANYL-100 [Suspect]
     Indication: PAIN IN EXTREMITY
     Route: 062
  12. FENTANYL-100 [Suspect]
     Route: 062
  13. DURAGESIC-100 [Suspect]
     Dosage: NDC# 50458.0092.05
     Route: 062
  14. DURAGESIC-100 [Suspect]
     Route: 062
  15. DURAGESIC-100 [Suspect]
     Dosage: NDC# 50458.0092.05
     Route: 062
  16. DURAGESIC-100 [Suspect]
     Route: 062
  17. DILTIAZEM [Concomitant]
     Indication: HYPERTENSION
     Route: 048
     Dates: start: 20000101
  18. NEXIUM [Concomitant]
     Indication: GASTRIC ULCER
     Route: 048
     Dates: start: 19990101
  19. PRILOSEC [Concomitant]
     Indication: GASTRIC ULCER
     Route: 048
     Dates: start: 19990101

REACTIONS (13)
  - ABDOMINAL PAIN UPPER [None]
  - AFFECT LABILITY [None]
  - BREAKTHROUGH PAIN [None]
  - DRUG INEFFECTIVE [None]
  - HYPERHIDROSIS [None]
  - INFLUENZA LIKE ILLNESS [None]
  - MENOPAUSE [None]
  - NIGHT SWEATS [None]
  - PAIN IN EXTREMITY [None]
  - VOMITING [None]
  - WEIGHT DECREASED [None]
  - WITHDRAWAL SYNDROME [None]
  - WRONG TECHNIQUE IN DRUG USAGE PROCESS [None]
